FAERS Safety Report 4411614-7 (Version None)
Quarter: 2004Q3

REPORT INFORMATION
  Report Type: 
  Country: None (occurrence: None)
  Receive Date: 20040727
  Receipt Date: 20040712
  Transmission Date: 20050211
  Serious: No
  Sender: FDA-Public Use
  Company Number: 04H-056-0266772-00

PATIENT
  Age: 56 Year
  Sex: Male

DRUGS (1)
  1. HEPARIN SODIUM INJECTION [Suspect]
     Indication: PROPHYLAXIS

REACTIONS (3)
  - HEPARIN-INDUCED THROMBOCYTOPENIA [None]
  - OBSTRUCTION [None]
  - PHLEBOTHROMBOSIS [None]
